FAERS Safety Report 6270286-X (Version None)
Quarter: 2009Q3

REPORT INFORMATION
  Report Type: 
  Country: None (occurrence: None)
  Receive Date: 20090716
  Receipt Date: 20090710
  Transmission Date: 20100115
  Serious: Yes (Hospitalization)
  Sender: FDA-Public Use
  Company Number: US-ELI_LILLY_AND_COMPANY-US200907002128

PATIENT
  Sex: Female

DRUGS (3)
  1. HUMULIN 70/30 [Suspect]
     Indication: TYPE 2 DIABETES MELLITUS
     Dates: end: 20090201
  2. HUMALOG [Suspect]
     Indication: TYPE 2 DIABETES MELLITUS
     Dates: start: 20090201
  3. LEVEMIR [Concomitant]
     Dates: start: 20090201

REACTIONS (2)
  - INJECTION SITE INFECTION [None]
  - SKIN GRAFT [None]
